FAERS Safety Report 23723426 (Version 1)
Quarter: 2024Q2

REPORT INFORMATION
  Report Type: Spontaneous
  Country: EG (occurrence: EG)
  Receive Date: 20240409
  Receipt Date: 20240409
  Transmission Date: 20240716
  Serious: Yes (Life-Threatening, Hospitalization, Other)
  Sender: FDA-Public Use
  Company Number: EG-SA-SAC20240408001345

PATIENT
  Age: 2 Day
  Weight: 3.15 kg

DRUGS (1)
  1. ENOXAPARIN SODIUM [Suspect]
     Active Substance: ENOXAPARIN SODIUM
     Dosage: UNK

REACTIONS (6)
  - Shock [Recovered/Resolved]
  - Upper gastrointestinal haemorrhage [Recovered/Resolved]
  - Haematemesis [Recovered/Resolved]
  - Haematochezia [Recovered/Resolved]
  - Lower gastrointestinal haemorrhage [Recovered/Resolved]
  - Foetal exposure during pregnancy [Unknown]

NARRATIVE: CASE EVENT DATE: 20240201
